FAERS Safety Report 16758356 (Version 1)
Quarter: 2019Q3

REPORT INFORMATION
  Report Type: Report from Study
  Country: DE (occurrence: DE)
  Receive Date: 20190830
  Receipt Date: 20190830
  Transmission Date: 20191005
  Serious: Yes (Other)
  Sender: FDA-Public Use
  Company Number: DE-ROCHE-2393197

PATIENT
  Sex: Female
  Weight: 1.65 kg

DRUGS (6)
  1. PHENOBARBITAL. [Suspect]
     Active Substance: PHENOBARBITAL
     Indication: NEONATAL SEIZURE
     Route: 042
  2. DIAZEPAM. [Suspect]
     Active Substance: DIAZEPAM
     Indication: NEONATAL SEIZURE
     Dosage: 3RD DAY ONCE A DAY FOR SEDATION
     Route: 042
  3. DIAZEPAM. [Suspect]
     Active Substance: DIAZEPAM
     Indication: ENDOTRACHEAL INTUBATION
     Dosage: 1ST DAY TWICE DAY FOR ENDOTRACHEAL INTUBATION AND SEDATION
     Route: 042
  4. DIAZEPAM. [Suspect]
     Active Substance: DIAZEPAM
     Indication: SEDATION
     Dosage: 2ND DAY TWICE A DAY FOR SEDATION
     Route: 042
  5. DIAZEPAM. [Suspect]
     Active Substance: DIAZEPAM
     Dosage: 4TH DAY ONCE A DAY FOR NEONATAL SEIZURE
     Route: 042
  6. PHENOBARBITAL. [Suspect]
     Active Substance: PHENOBARBITAL
     Indication: ENDOTRACHEAL INTUBATION
     Route: 042

REACTIONS (4)
  - Hyperbilirubinaemia [Unknown]
  - Hypotonia [Unknown]
  - Somnolence [Unknown]
  - Respiratory depression [Unknown]
